FAERS Safety Report 7299642-8 (Version None)
Quarter: 2011Q1

REPORT INFORMATION
  Report Type: 
  Country: None (occurrence: None)
  Receive Date: 20110208
  Receipt Date: 20110103
  Transmission Date: 20110831
  Serious: Yes (Hospitalization)
  Sender: FDA-Public Use
  Company Number: 2011SP000075

PATIENT
  Age: 45 Year
  Sex: Female

DRUGS (1)
  1. CEDAX [Suspect]
     Indication: PHARYNGOTONSILLITIS
     Dosage: 4 MG; ONCE PO, 4 MG; CAP; PO; ONCE
     Route: 048
     Dates: start: 20101227, end: 20101227

REACTIONS (4)
  - EXPIRED DRUG ADMINISTERED [None]
  - URTICARIA [None]
  - PRURITUS [None]
  - LIP OEDEMA [None]
